FAERS Safety Report 8618468-3 (Version None)
Quarter: 2012Q3

REPORT INFORMATION
  Report Type: 
  Country: None (occurrence: None)
  Receive Date: 20120824
  Receipt Date: 20120816
  Transmission Date: 20120928
  Serious: Yes (Hospitalization)
  Sender: FDA-Public Use
  Company Number: US-009507513-1208USA000388

PATIENT

DRUGS (5)
  1. DULERA [Concomitant]
  2. ABILIFY [Concomitant]
  3. NASONEX [Concomitant]
  4. SINGULAIR [Suspect]
     Indication: ASTHMA
     Dosage: 5 MG, QD
     Route: 048
     Dates: start: 20091027, end: 20120621
  5. VYVANSE [Concomitant]

REACTIONS (8)
  - SYNCOPE [None]
  - FEAR [None]
  - SUICIDAL IDEATION [None]
  - MENTAL DISORDER [None]
  - ASTHMA [None]
  - DELUSION [None]
  - HALLUCINATION [None]
  - WEIGHT INCREASED [None]
